FAERS Safety Report 13539094 (Version 1)
Quarter: 2017Q2

REPORT INFORMATION
  Report Type: Report from Study
  Country: US (occurrence: US)
  Receive Date: 20170512
  Receipt Date: 20170512
  Transmission Date: 20170830
  Serious: Yes (Hospitalization)
  Sender: FDA-Public Use
  Company Number: US-BIOGEN-2017BI00401328

PATIENT
  Sex: Female

DRUGS (2)
  1. TECFIDERA [Suspect]
     Active Substance: DIMETHYL FUMARATE
     Indication: MULTIPLE SCLEROSIS
     Dosage: STARTING DOSE
     Route: 048
  2. TECFIDERA [Suspect]
     Active Substance: DIMETHYL FUMARATE
     Dosage: MAINTENANCE DOSE
     Route: 048

REACTIONS (9)
  - Gait disturbance [Unknown]
  - Hypoaesthesia [Unknown]
  - Encephalitis [Unknown]
  - Coordination abnormal [Unknown]
  - Encephalitis brain stem [Unknown]
  - Muscular weakness [Unknown]
  - Dysarthria [Unknown]
  - Nystagmus [Unknown]
  - Hemiparesis [Unknown]
